FAERS Safety Report 23054613 (Version 1)
Quarter: 2023Q4

REPORT INFORMATION
  Report Type: Spontaneous
  Country: US (occurrence: None)
  Receive Date: 20231010
  Receipt Date: 20231010
  Transmission Date: 20240110
  Serious: Yes (Life-Threatening, Hospitalization, Other)
  Sender: FDA-Public Use
  Company Number: None

PATIENT
  Age: 49 Year
  Sex: Male
  Weight: 154.35 kg

DRUGS (1)
  1. JARDIANCE [Suspect]
     Active Substance: EMPAGLIFLOZIN
     Indication: Diabetes mellitus
     Dates: start: 20190107, end: 20190114

REACTIONS (7)
  - Ketoacidosis [None]
  - Cerebrovascular accident [None]
  - Necrotising fasciitis [None]
  - Spinal cord abscess [None]
  - Seizure [None]
  - Incontinence [None]
  - Wheelchair user [None]

NARRATIVE: CASE EVENT DATE: 20201016
